FAERS Safety Report 8579780-X (Version None)
Quarter: 2012Q3

REPORT INFORMATION
  Report Type: 
  Country: None (occurrence: None)
  Receive Date: 20120808
  Receipt Date: 20120730
  Transmission Date: 20120928
  Serious: Yes (Hospitalization)
  Sender: FDA-Public Use
  Company Number: FR-ASTRAZENECA-2012SE54190

PATIENT
  Age: 57 Year
  Sex: Male
  Weight: 54 kg

DRUGS (7)
  1. VIDEX [Concomitant]
     Indication: HIV INFECTION
     Dates: start: 20010101
  2. XIAPEX [Suspect]
     Indication: DUPUYTREN'S CONTRACTURE
     Route: 058
     Dates: start: 20111114, end: 20111114
  3. XYLOCAINE [Suspect]
     Indication: LOCAL ANAESTHESIA
     Route: 058
     Dates: start: 20111115, end: 20111115
  4. PREVISTA [Concomitant]
     Indication: HIV INFECTION
     Dates: start: 20010101
  5. NORVIR [Concomitant]
     Indication: HIV INFECTION
     Dates: start: 20010101
  6. ZIAGEN [Concomitant]
     Indication: HIV INFECTION
     Dates: start: 20010101
  7. ACETAMINOPHEN [Concomitant]
     Indication: PAIN
     Dates: start: 20111114, end: 20111116

REACTIONS (1)
  - PAIN IN EXTREMITY [None]
